FAERS Safety Report 5917396-1 (Version None)
Quarter: 2008Q4

REPORT INFORMATION
  Report Type: 
  Country: None (occurrence: None)
  Receive Date: 20081014
  Receipt Date: 20081003
  Transmission Date: 20090506
  Serious: Yes (Hospitalization)
  Sender: FDA-Public Use
  Company Number: A0751459A

PATIENT
  Age: 44 Year
  Sex: Female
  Weight: 147.7 kg

DRUGS (1)
  1. AVANDIA [Suspect]
     Route: 048

REACTIONS (7)
  - CARDIAC DISORDER [None]
  - CARDIAC FAILURE CONGESTIVE [None]
  - FATIGUE [None]
  - HEART RATE INCREASED [None]
  - JOINT SWELLING [None]
  - VENTRICULAR TACHYCARDIA [None]
  - WEIGHT INCREASED [None]
